FAERS Safety Report 22020439 (Version 1)
Quarter: 2023Q1

REPORT INFORMATION
  Report Type: Spontaneous
  Country: CA (occurrence: CA)
  Receive Date: 20230222
  Receipt Date: 20230222
  Transmission Date: 20230417
  Serious: Yes (Hospitalization, Other)
  Sender: FDA-Public Use
  Company Number: CA-GLAXOSMITHKLINE-CA2023AMR026124

PATIENT

DRUGS (13)
  1. SUMATRIPTAN SUCCINATE [Suspect]
     Active Substance: SUMATRIPTAN SUCCINATE
     Indication: Migraine
     Dosage: 50 MG, TOTAL
  2. ONDANSETRON [Suspect]
     Active Substance: ONDANSETRON
     Indication: Vomiting
     Dosage: 8.0 MG
     Route: 042
  3. ONDANSETRON [Suspect]
     Active Substance: ONDANSETRON
     Indication: Nausea
  4. PROCHLORPERAZINE [Suspect]
     Active Substance: PROCHLORPERAZINE
     Indication: Vomiting
     Dosage: 5.0 MG, 1 EVERY 6 HOURS
     Route: 048
  5. PROCHLORPERAZINE [Suspect]
     Active Substance: PROCHLORPERAZINE
     Indication: Nausea
     Dosage: 10 MG, 1 EVERY 6 HOURS
     Route: 048
  6. DIMENHYDRINATE [Concomitant]
     Active Substance: DIMENHYDRINATE
     Indication: Vomiting
     Dosage: 50 MG, 1 EVERY 4 HOURS
     Route: 042
  7. DIMENHYDRINATE [Concomitant]
     Active Substance: DIMENHYDRINATE
     Indication: Nausea
  8. DOXYLAMINE [Concomitant]
     Active Substance: DOXYLAMINE
     Indication: Vomiting
     Dosage: 50 MG, 3 EVERY 1 DAYS
     Route: 048
  9. DOXYLAMINE [Concomitant]
     Active Substance: DOXYLAMINE
     Indication: Nausea
  10. FAMOTIDINE [Concomitant]
     Active Substance: FAMOTIDINE
     Indication: Vomiting
     Dosage: 20 MG, 1 EVERY 4 HOURS
  11. FAMOTIDINE [Concomitant]
     Active Substance: FAMOTIDINE
     Indication: Nausea
  12. PYRIDOXINE [Concomitant]
     Active Substance: PYRIDOXINE
     Indication: Vomiting
     Dosage: 3 EVERY 1 DAYS
     Route: 048
  13. PYRIDOXINE [Concomitant]
     Active Substance: PYRIDOXINE
     Indication: Nausea

REACTIONS (2)
  - Serotonin syndrome [Recovered/Resolved]
  - Exposure during pregnancy [Recovered/Resolved]
